FAERS Safety Report 20654969 (Version 1)
Quarter: 2022Q1

REPORT INFORMATION
  Report Type: Spontaneous
  Country: CN (occurrence: CN)
  Receive Date: 20220330
  Receipt Date: 20220330
  Transmission Date: 20220423
  Serious: Yes (Other)
  Sender: FDA-Public Use
  Company Number: CN-PFIZER INC-202200440898

PATIENT
  Age: 61 Year
  Sex: Female
  Weight: 65 kg

DRUGS (1)
  1. ZYVOX [Suspect]
     Active Substance: LINEZOLID
     Indication: Symptomatic treatment
     Dosage: 0.6 G, 2X/DAY
     Route: 041
     Dates: start: 20220128, end: 20220204

REACTIONS (3)
  - Blood lactic acid increased [Recovering/Resolving]
  - Diarrhoea [Recovered/Resolved]
  - PO2 decreased [Recovering/Resolving]

NARRATIVE: CASE EVENT DATE: 20220131
